FAERS Safety Report 13668224 (Version 9)
Quarter: 2019Q1

REPORT INFORMATION
  Report Type: Report from Study
  Country: CA (occurrence: CA)
  Receive Date: 20170620
  Receipt Date: 20190312
  Transmission Date: 20190417
  Serious: Yes (Other)
  Sender: FDA-Public Use
  Company Number: CA-ROCHE-1856979

PATIENT
  Age: 65 Year
  Sex: Female

DRUGS (16)
  1. SALAZOPYRINE [Concomitant]
     Active Substance: SULFASALAZINE
  2. SYNTHROID [Concomitant]
     Active Substance: LEVOTHYROXINE SODIUM
  3. DIPHENHYDRAMINE HCL [Concomitant]
     Active Substance: DIPHENHYDRAMINE HYDROCHLORIDE
     Indication: PREMEDICATION
     Route: 048
     Dates: start: 20160413
  4. PANTOLOC [Concomitant]
     Active Substance: PANTOPRAZOLE SODIUM
  5. PREGABALIN. [Concomitant]
     Active Substance: PREGABALIN
  6. NAPROXEN. [Concomitant]
     Active Substance: NAPROXEN
  7. ARAVA [Concomitant]
     Active Substance: LEFLUNOMIDE
  8. METHYLPREDNISOLONE. [Concomitant]
     Active Substance: METHYLPREDNISOLONE
     Indication: PREMEDICATION
     Route: 042
     Dates: start: 20160413
  9. DICLOFENAC [Concomitant]
     Active Substance: DICLOFENAC
  10. ORENCIA [Concomitant]
     Active Substance: ABATACEPT
  11. RITUXAN [Suspect]
     Active Substance: RITUXIMAB
     Indication: RHEUMATOID ARTHRITIS
     Dosage: PREVIOUS RITUXIMAB ON 13/OCT/2017
     Route: 042
     Dates: start: 20160413
  12. PLAQUENIL [Concomitant]
     Active Substance: HYDROXYCHLOROQUINE SULFATE
  13. OESTROGEL [Concomitant]
     Active Substance: ESTRADIOL
  14. ACETAMINOPHEN. [Concomitant]
     Active Substance: ACETAMINOPHEN
     Indication: PREMEDICATION
     Route: 048
     Dates: start: 20160413
  15. MEDROL [Concomitant]
     Active Substance: METHYLPREDNISOLONE
  16. VITAMIN B12 [Concomitant]
     Active Substance: CYANOCOBALAMIN

REACTIONS (21)
  - Gait disturbance [Not Recovered/Not Resolved]
  - Inflammatory pain [Not Recovered/Not Resolved]
  - Mental disorder [Unknown]
  - Rheumatoid arthritis [Unknown]
  - Asthenia [Recovered/Resolved]
  - Fatigue [Recovered/Resolved]
  - Asthenia [Unknown]
  - Arthralgia [Not Recovered/Not Resolved]
  - Tonsillar inflammation [Recovered/Resolved]
  - Vaginal infection [Recovered/Resolved]
  - Heart rate decreased [Unknown]
  - Dyspnoea [Recovered/Resolved]
  - Arthritis [Unknown]
  - Pain in extremity [Unknown]
  - Total lung capacity decreased [Not Recovered/Not Resolved]
  - Arthralgia [Unknown]
  - Musculoskeletal stiffness [Not Recovered/Not Resolved]
  - Mobility decreased [Not Recovered/Not Resolved]
  - Cough [Not Recovered/Not Resolved]
  - Nausea [Recovered/Resolved]
  - Pulmonary fibrosis [Unknown]

NARRATIVE: CASE EVENT DATE: 201612
